FAERS Safety Report 7339667-7 (Version None)
Quarter: 2011Q1

REPORT INFORMATION
  Report Type: 
  Country: None (occurrence: None)
  Receive Date: 20110308
  Receipt Date: 20110224
  Transmission Date: 20110831
  Serious: Yes (Hospitalization)
  Sender: FDA-Public Use
  Company Number: CA-ELI_LILLY_AND_COMPANY-CA201102007147

PATIENT
  Age: 69 Year
  Sex: Female

DRUGS (12)
  1. COZAAR [Concomitant]
  2. VITAMIN B-12 [Concomitant]
     Dosage: UNK, MONTHLY (1/M)
  3. TYLENOL   /SCH/ [Concomitant]
  4. FORTEO [Suspect]
     Indication: OSTEOPOROSIS
     Dosage: 20 UG, DAILY (1/D)
     Route: 058
     Dates: start: 20100214
  5. METFORMIN [Concomitant]
  6. LIPITOR [Concomitant]
  7. SENOKOT [Concomitant]
  8. DILTIAZEM [Concomitant]
  9. SYNTHROID [Concomitant]
  10. ASA [Concomitant]
  11. ADVAIR [Concomitant]
  12. VENTOLIN  /SCH/ [Concomitant]

REACTIONS (1)
  - HIP ARTHROPLASTY [None]
